FAERS Safety Report 7472519-0 (Version None)
Quarter: 2011Q2

REPORT INFORMATION
  Report Type: 
  Country: None (occurrence: None)
  Receive Date: 20110511
  Receipt Date: 20110502
  Transmission Date: 20111010
  Serious: Yes (Other)
  Sender: FDA-Public Use
  Company Number: JP-NOVOPROD-326899

PATIENT
  Age: 55 Year
  Sex: Female
  Weight: 66 kg

DRUGS (7)
  1. VICTOZA [Suspect]
     Dosage: 0.3 MG, QD
     Route: 058
     Dates: start: 20110417, end: 20110419
  2. AMARYL [Concomitant]
     Dosage: 1 MG, QD, MORNING
     Route: 048
  3. METFORMIN HCL [Concomitant]
     Dosage: 750 MG, QD, MORNING/NIGHT
     Route: 048
  4. VICTOZA [Suspect]
     Dosage: 0.6 MG, QD
     Route: 058
     Dates: start: 20110415
  5. SEIBULE [Concomitant]
     Dosage: 150 MG, QD, MORNING
     Route: 048
  6. ACTOS [Concomitant]
     Dosage: 15 MG, QD
     Route: 048
  7. VICTOZA [Suspect]
     Indication: TYPE 2 DIABETES MELLITUS
     Dosage: 0.3 MG, QD
     Route: 058
     Dates: start: 20110401

REACTIONS (10)
  - HYPOAESTHESIA [None]
  - GINGIVAL SWELLING [None]
  - SKIN EXFOLIATION [None]
  - HEADACHE [None]
  - RASH MACULAR [None]
  - ABDOMINAL PAIN [None]
  - NAUSEA [None]
  - INTRAOCULAR PRESSURE INCREASED [None]
  - ERYTHEMA OF EYELID [None]
  - DIARRHOEA [None]
